FAERS Safety Report 23368424 (Version 1)
Quarter: 2024Q1

REPORT INFORMATION
  Report Type: Spontaneous
  Country: NL (occurrence: NL)
  Receive Date: 20240105
  Receipt Date: 20240105
  Transmission Date: 20240410
  Serious: Yes (Other)
  Sender: FDA-Public Use
  Company Number: NL-SANDOZ-SDZ2023NL074196

PATIENT
  Sex: Female

DRUGS (1)
  1. ETANERCEPT [Suspect]
     Active Substance: ETANERCEPT
     Indication: Product used for unknown indication
     Dosage: 50 MG, Q2W
     Route: 065

REACTIONS (5)
  - Osteitis [Unknown]
  - Weight decreased [Unknown]
  - Alopecia [Unknown]
  - Oral fungal infection [Unknown]
  - Overdose [Unknown]
